FAERS Safety Report 6983134-7 (Version None)
Quarter: 2010Q3

REPORT INFORMATION
  Report Type: 
  Country: None (occurrence: None)
  Receive Date: 20100914
  Receipt Date: 20100601
  Transmission Date: 20110219
  Serious: No
  Sender: FDA-Public Use
  Company Number: US-PFIZER INC-2010068839

PATIENT
  Sex: Female
  Weight: 62.132 kg

DRUGS (7)
  1. LYRICA [Suspect]
     Indication: NEUROPATHY PERIPHERAL
     Dosage: 75 MG, DAILY
     Route: 048
     Dates: start: 20100526, end: 20100526
  2. PRANDIN [Concomitant]
     Indication: DIABETES MELLITUS
     Dosage: 2 MG IN MORNING AND AFTERNOON, 6 MG AT DINNER
     Route: 048
  3. INSULIN [Concomitant]
     Indication: DIABETES MELLITUS
     Dosage: 29 DAILY AT NIGHT
  4. DIOVAN [Concomitant]
     Indication: HYPERTENSION
     Dosage: 160 MG DAILY
     Route: 048
  5. NEBIVOLOL [Concomitant]
     Indication: HYPERTENSION
     Dosage: 2.5  MG DAILY
     Route: 048
  6. METHOTREXATE [Concomitant]
     Indication: MUSCULOSKELETAL PAIN
     Dosage: 2.5 MG FOUR  TABLETS ONCE A WEEK
  7. METHOTREXATE [Concomitant]
     Indication: ARTHRITIS

REACTIONS (3)
  - BALANCE DISORDER [None]
  - DIZZINESS [None]
  - SEDATION [None]
